FAERS Safety Report 5908265-1 (Version None)
Quarter: 2008Q4

REPORT INFORMATION
  Report Type: 
  Country: None (occurrence: None)
  Receive Date: 20081002
  Receipt Date: 20081002
  Transmission Date: 20090506
  Serious: Yes (Other)
  Sender: FDA-Public Use
  Company Number: None

PATIENT
  Age: 42 Year
  Sex: Female
  Weight: 58.9676 kg

DRUGS (2)
  1. SYNTHROID [Suspect]
     Indication: HYPOTHYROIDISM
     Dosage: 50 MCG X 1 1/2 ONCE A DAY MOUTH
     Route: 048
     Dates: start: 20080601, end: 20080901
  2. LEVOXYL [Suspect]
     Indication: HYPOTHYROIDISM
     Dosage: 50 MCG X 1 1/2 ONCE A DAY MOUTH
     Route: 048
     Dates: start: 20060301, end: 20060701

REACTIONS (2)
  - ALOPECIA [None]
  - PRURITUS [None]
